FAERS Safety Report 10087770 (Version 1)
Quarter: 2014Q2

REPORT INFORMATION
  Report Type: Spontaneous
  Country: US (occurrence: US)
  Receive Date: 20140418
  Receipt Date: 20140418
  Transmission Date: 20141212
  Serious: No
  Sender: FDA-Public Use
  Company Number: US-PURDUE-USA-2014-0110542

PATIENT
  Age: 59 Year
  Sex: Male

DRUGS (2)
  1. OXYCONTIN (NDA 22-272) [Suspect]
     Indication: BACK PAIN
     Dosage: 40 MG, BID
     Route: 048
     Dates: start: 2008
  2. OXYCONTIN (NDA 22-272) [Suspect]
     Indication: NECK PAIN

REACTIONS (2)
  - Mouth ulceration [Not Recovered/Not Resolved]
  - Rash pruritic [Not Recovered/Not Resolved]
